FAERS Safety Report 8919331 (Version 3)
Quarter: 2013Q2

REPORT INFORMATION
  Report Type: Spontaneous
  Country: US (occurrence: US)
  Receive Date: 20121121
  Receipt Date: 20130401
  Transmission Date: 20140414
  Serious: Yes (Life-Threatening, Other)
  Sender: FDA-Public Use
  Company Number: US-BAYER-2012-119434

PATIENT
  Age: 41 Year
  Sex: Female

DRUGS (11)
  1. YASMIN [Suspect]
     Indication: POLYCYSTIC OVARIES
  2. OCELLA [Suspect]
  3. YAZ [Suspect]
  4. ZARAH [Suspect]
  5. BEYAZ [Suspect]
  6. TAZORAC [Concomitant]
     Dosage: 0.05 %, UNK
     Dates: start: 20120322
  7. EMOLLIENTS AND PROTECTIVES [Concomitant]
     Dosage: UNK
     Dates: start: 20120322
  8. SINGULAIR [Concomitant]
     Dosage: 10 MG, UNK
     Dates: start: 20120329
  9. FLUTICASONE [Concomitant]
     Dosage: 50 ?G, UNK
     Dates: start: 20120419
  10. CYANOCOBALAMIN [Concomitant]
     Dosage: 1000 MCG/ML, UNK
  11. TYLENOL IBUPROFEN [Concomitant]

REACTIONS (10)
  - Thrombophlebitis superficial [Recovering/Resolving]
  - Off label use [None]
  - Embolism venous [None]
  - Injury [None]
  - Pain [None]
  - General physical health deterioration [None]
  - Anhedonia [None]
  - Anxiety [None]
  - Emotional distress [None]
  - Pain [None]
